FAERS Safety Report 18936345 (Version 12)
Quarter: 2023Q2

REPORT INFORMATION
  Report Type: Report from Study
  Country: JP (occurrence: JP)
  Receive Date: 20210224
  Receipt Date: 20230413
  Transmission Date: 20230722
  Serious: Yes (Hospitalization)
  Sender: FDA-Public Use
  Company Number: JP-PFIZER INC-2021179046

PATIENT
  Age: 14 Year
  Sex: Female
  Weight: 47.8 kg

DRUGS (7)
  1. SIROLIMUS [Suspect]
     Active Substance: SIROLIMUS
     Indication: Gorham^s disease
     Dosage: 2 MG (2 MG,1 IN 1 D)
     Route: 048
     Dates: start: 20190712, end: 20200812
  2. SIROLIMUS [Suspect]
     Active Substance: SIROLIMUS
     Dosage: 1 IN 1 D
     Route: 048
     Dates: start: 20200905, end: 20210206
  3. SIROLIMUS [Suspect]
     Active Substance: SIROLIMUS
     Dosage: 2 MG (2 MG,1 IN 1 D)
     Route: 048
     Dates: start: 20210226, end: 20220105
  4. ALFAROL [Concomitant]
     Active Substance: ALFACALCIDOL
     Indication: Osteoporosis
     Dosage: 1 MCG,1 D
     Route: 048
     Dates: start: 20181002
  5. MENATETRENONE [Concomitant]
     Active Substance: MENATETRENONE
     Indication: Osteoporosis
     Dosage: 15 MG,1 D
     Route: 048
     Dates: start: 20190327
  6. XYZAL [Concomitant]
     Active Substance: LEVOCETIRIZINE DIHYDROCHLORIDE
     Indication: Rhinitis allergic
     Dosage: 5 MG,1 D
     Route: 048
     Dates: start: 20200110
  7. ZOLEDRONIC ACID [Concomitant]
     Active Substance: ZOLEDRONIC ACID
     Indication: Osteoporosis
     Dosage: 4 MG
     Route: 042
     Dates: start: 20190718

REACTIONS (3)
  - Lymphangitis [Recovered/Resolved]
  - Meningitis streptococcal [Recovered/Resolved]
  - Lymphangitis [Recovered/Resolved]

NARRATIVE: CASE EVENT DATE: 20200812
